FAERS Safety Report 5708231-5 (Version None)
Quarter: 2008Q2

REPORT INFORMATION
  Report Type: 
  Country: None (occurrence: None)
  Receive Date: 20080417
  Receipt Date: 20080402
  Transmission Date: 20081010
  Serious: Yes (Death)
  Sender: FDA-Public Use
  Company Number: FR-GENENTECH-258878

PATIENT

DRUGS (8)
  1. BEVACIZUMAB [Suspect]
     Indication: NON-SMALL CELL LUNG CANCER
     Dosage: 950 MG, Q3W
     Route: 042
     Dates: start: 20070711
  2. CARBOPLATIN [Concomitant]
     Indication: NON-SMALL CELL LUNG CANCER
     Dates: start: 20070711, end: 20071106
  3. TAXOL [Concomitant]
     Indication: NON-SMALL CELL LUNG CANCER
     Dates: start: 20070711, end: 20071106
  4. DUPHALAC [Concomitant]
     Indication: DRUG USE FOR UNKNOWN INDICATION
     Dates: start: 20070131, end: 20080119
  5. EFFERALGAN CODEINE [Concomitant]
     Indication: DRUG USE FOR UNKNOWN INDICATION
     Dates: start: 20070710, end: 20080119
  6. INNOHEP [Concomitant]
     Indication: DRUG USE FOR UNKNOWN INDICATION
     Dates: start: 20080103, end: 20080119
  7. KAYEXALATE [Concomitant]
     Indication: DRUG USE FOR UNKNOWN INDICATION
     Dates: start: 20070731, end: 20080119
  8. LEXOMIL [Concomitant]
     Indication: DRUG USE FOR UNKNOWN INDICATION
     Dates: start: 20070705, end: 20080119

REACTIONS (2)
  - DEATH [None]
  - HAEMOPTYSIS [None]
